FAERS Safety Report 14898462 (Version 2)
Quarter: 2018Q2

REPORT INFORMATION
  Report Type: Report from Study
  Country: US (occurrence: US)
  Receive Date: 20180515
  Receipt Date: 20180529
  Transmission Date: 20180711
  Serious: Yes (Other)
  Sender: FDA-Public Use
  Company Number: US-PFIZER INC-2018193114

PATIENT
  Age: 17 Year
  Sex: Female
  Weight: 58.5 kg

DRUGS (12)
  1. VP-16 [Suspect]
     Active Substance: ETOPOSIDE
     Indication: ANAPLASTIC LARGE-CELL LYMPHOMA
     Dosage: 100 MG/M2, OVER 2 HOURS ON DAYS 4 AND 5 (COURSE A)
     Route: 042
  2. CYTARABINE. [Suspect]
     Active Substance: CYTARABINE
     Indication: ANAPLASTIC LARGE-CELL LYMPHOMA
     Dosage: 15-24 MG ON DAY 1 (AGE BASED DOSING), CYCLIC
     Route: 037
     Dates: start: 20180407
  3. IFOSFAMIDE. [Suspect]
     Active Substance: IFOSFAMIDE
     Indication: ANAPLASTIC LARGE-CELL LYMPHOMA
     Dosage: 800 MG/M2, OVER 60 MIN ON DAYS 1-5 (COURSE A)
     Route: 042
     Dates: start: 20180412
  4. DEXAMETHASONE. [Concomitant]
     Active Substance: DEXAMETHASONE
     Dosage: 5 MG/M2, BID ON DAYS 1-5 (COURSE A)
     Route: 048
     Dates: start: 20180412, end: 20180417
  5. HYDROCORTISONE. [Suspect]
     Active Substance: HYDROCORTISONE
     Indication: ANAPLASTIC LARGE-CELL LYMPHOMA
     Dosage: 7.5-12MG ON DAY 1 (AGE BASED DOSING); PROPHASE (CYCLE=5 DAYS)
     Route: 037
     Dates: start: 20180407
  6. DEXAMETHASONE. [Concomitant]
     Active Substance: DEXAMETHASONE
     Indication: ANAPLASTIC LARGE-CELL LYMPHOMA
     Dosage: 5 MG/M2, QD ON DAYS 1-2, AND BID ON DAYS 3-5 OF PROPHASE (CYCLE = 5 DAYS)
     Route: 048
     Dates: start: 20180407
  7. METHOTREXATE. [Concomitant]
     Active Substance: METHOTREXATE
     Indication: ANAPLASTIC LARGE-CELL LYMPHOMA
     Dosage: 7.5-12MG ON DAY 1 (AGE BASED DOSING) OF PROPHASE (CYCLE = 5 DAYS)
     Route: 037
     Dates: start: 20180407
  8. CYTARABINE. [Suspect]
     Active Substance: CYTARABINE
     Dosage: 150 MG/M2, VER 1-30 MINUTES Q12 HOURS ON DAYS 4 AND 5 (COURSE A)
     Route: 042
     Dates: start: 20180415, end: 20180416
  9. CYCLOPHOSPHAMIDE. [Suspect]
     Active Substance: CYCLOPHOSPHAMIDE
     Indication: ANAPLASTIC LARGE-CELL LYMPHOMA
     Dosage: 200 MG/M2, OVER 15-30 MINUTES ON DAYS 1 AND 2; PROPHASE (CYCLE=5 DAYS)
     Route: 042
     Dates: start: 20180407
  10. CRIZOTINIB [Suspect]
     Active Substance: CRIZOTINIB
     Indication: ANAPLASTIC LARGE-CELL LYMPHOMA
     Dosage: 165 MG/M2, CYCLIC BID ON DAYS 1-21 (COURSE A)
     Route: 048
     Dates: start: 20180425
  11. METHOTREXATE. [Concomitant]
     Active Substance: METHOTREXATE
     Dosage: 3000 MG/M2, OVER 3 HOURS ON DAY 1 (COURSE A)
     Route: 042
     Dates: start: 20180412
  12. FENTANYL CITRATE. [Suspect]
     Active Substance: FENTANYL CITRATE

REACTIONS (2)
  - Atelectasis [Recovering/Resolving]
  - Oesophagitis [Recovering/Resolving]

NARRATIVE: CASE EVENT DATE: 20180426
